FAERS Safety Report 10430689 (Version 1)
Quarter: 2014Q3

REPORT INFORMATION
  Report Type: Report from Study
  Country: CO (occurrence: CO)
  Receive Date: 20140904
  Receipt Date: 20140904
  Transmission Date: 20150326
  Serious: Yes (Hospitalization)
  Sender: FDA-Public Use
  Company Number: CO-BRISTOL-MYERS SQUIBB COMPANY-21358171

PATIENT
  Age: 68 Year
  Sex: Female

DRUGS (1)
  1. YERVOY [Suspect]
     Active Substance: IPILIMUMAB
     Indication: METASTATIC MALIGNANT MELANOMA
     Dosage: FINISHED THE 4 CYCLES OF TREATMENT ON 20-JUN-2014.?STR:250MG
     Dates: start: 20140415

REACTIONS (1)
  - Incontinence [Unknown]

NARRATIVE: CASE EVENT DATE: 20140901
